FAERS Safety Report 12179231 (Version 1)
Quarter: 2016Q1

REPORT INFORMATION
  Report Type: Spontaneous
  Country: JP (occurrence: JP)
  Receive Date: 20160315
  Receipt Date: 20160315
  Transmission Date: 20160526
  Serious: Yes (Other)
  Sender: FDA-Public Use
  Company Number: JP-AMGEN-JPNSP2016032159

PATIENT
  Age: 54 Year
  Sex: Male

DRUGS (4)
  1. ADRIACIN [Suspect]
     Active Substance: DOXORUBICIN HYDROCHLORIDE
     Indication: METASTASES TO CENTRAL NERVOUS SYSTEM
     Dosage: 30 MG/M2, 1X/3WEEKS
     Route: 065
  2. IFOSFAMIDE. [Suspect]
     Active Substance: IFOSFAMIDE
     Indication: METASTASES TO CENTRAL NERVOUS SYSTEM
     Dosage: 2000 MG/M2, 1X/3WEEKS
     Route: 042
  3. MESNA. [Concomitant]
     Active Substance: MESNA
     Dosage: UNK UNK, 1X/3WEEKS
     Route: 042
  4. G-LASTA [Suspect]
     Active Substance: PEGFILGRASTIM
     Indication: PRODUCT USED FOR UNKNOWN INDICATION
     Dosage: UNK, 1X/3WEEKS
     Route: 058

REACTIONS (1)
  - Leukopenia [Unknown]
